FAERS Safety Report 14543016 (Version 2)
Quarter: 2018Q1

REPORT INFORMATION
  Report Type: Report from Study
  Country: CR (occurrence: CR)
  Receive Date: 20180216
  Receipt Date: 20180316
  Transmission Date: 20180509
  Serious: Yes (Other)
  Sender: FDA-Public Use
  Company Number: PHHY2017CR184952

PATIENT
  Sex: Male
  Weight: 72 kg

DRUGS (2)
  1. IRBESARTAN. [Suspect]
     Active Substance: IRBESARTAN
     Indication: HYPERTENSION
     Dosage: 150 MG, QD
     Route: 065
  2. SANDOSTATIN LAR DEPOT [Suspect]
     Active Substance: OCTREOTIDE ACETATE
     Indication: PRODUCT USED FOR UNKNOWN INDICATION
     Dosage: 30 MG, UNK
     Route: 065
     Dates: start: 2005

REACTIONS (7)
  - Myalgia [Unknown]
  - Back pain [Unknown]
  - Wrong technique in product usage process [Unknown]
  - Injection site discomfort [Recovering/Resolving]
  - Paralysis [Unknown]
  - Gait disturbance [Unknown]
  - Injection site pain [Unknown]
